FAERS Safety Report 7064376-1 (Version None)
Quarter: 2010Q4

REPORT INFORMATION
  Report Type: 
  Country: None (occurrence: None)
  Receive Date: 20101027
  Receipt Date: 20101022
  Transmission Date: 20110411
  Serious: Yes (Death, Congenital Anomaly)
  Sender: FDA-Public Use
  Company Number: EE-BRISTOL-MYERS SQUIBB COMPANY-14976393

PATIENT
  Age: 2 Day
  Sex: Female
  Weight: 2 kg

DRUGS (3)
  1. MONOPRIL [Suspect]
     Dosage: 10MG * 1
     Route: 064
  2. METFORMIN HCL [Suspect]
     Route: 064
  3. TEVETEN [Suspect]
     Route: 064

REACTIONS (6)
  - CARDIOPULMONARY FAILURE [None]
  - FOETAL GROWTH RESTRICTION [None]
  - HYPOTONIA [None]
  - LIMB MALFORMATION [None]
  - RENAL FAILURE [None]
  - SKULL MALFORMATION [None]
